FAERS Safety Report 17021407 (Version 26)
Quarter: 2021Q4

REPORT INFORMATION
  Report Type: Spontaneous
  Country: US (occurrence: US)
  Receive Date: 20191112
  Receipt Date: 20211213
  Transmission Date: 20220303
  Serious: Yes (Other)
  Sender: FDA-Public Use
  Company Number: US-PFIZER INC-2019480943

PATIENT
  Age: 74 Year
  Sex: Male
  Weight: 75 kg

DRUGS (22)
  1. INSPRA [Suspect]
     Active Substance: EPLERENONE
     Indication: Hypertension
     Dosage: 50 MG, 2X/DAY
     Route: 048
  2. INSPRA [Suspect]
     Active Substance: EPLERENONE
     Indication: Secondary hypertension
     Dosage: 50 MG, 1X/DAY
     Route: 048
  3. INSPRA [Suspect]
     Active Substance: EPLERENONE
     Indication: Hyperaldosteronism
     Dosage: 50 MG, 2X/DAY
     Route: 048
     Dates: start: 201912
  4. INSPRA [Suspect]
     Active Substance: EPLERENONE
     Indication: Adrenomegaly
     Dosage: 75 MG, 2X/DAY
     Dates: start: 20201102
  5. INSPRA [Suspect]
     Active Substance: EPLERENONE
     Indication: Blood potassium abnormal
     Dosage: 25 MG, 2X/DAY
     Route: 048
  6. INSPRA [Suspect]
     Active Substance: EPLERENONE
     Indication: Primary hyperaldosteronism
     Dosage: 75 MG (50 MG PLUS 25 MG) TWICE A DAY
     Route: 048
  7. INSPRA [Suspect]
     Active Substance: EPLERENONE
     Indication: Endocrine hypertension
     Dosage: 50 MG
  8. INSPRA [Suspect]
     Active Substance: EPLERENONE
     Dosage: 25 MG
  9. LOSARTAN [Suspect]
     Active Substance: LOSARTAN
     Dosage: UNK
  10. AMLODIPINE [Concomitant]
     Active Substance: AMLODIPINE BESYLATE
     Indication: Hypertension
     Dosage: 5 MG, 2X/DAY (10 MG A DAY)
  11. DOXAZOSIN [Concomitant]
     Active Substance: DOXAZOSIN MESYLATE
     Indication: Hypertension
     Dosage: 1100 MG, TWICE A DAY (BID)
  12. DOXAZOSIN [Concomitant]
     Active Substance: DOXAZOSIN MESYLATE
     Dosage: 1 MG, 2X/DAY
  13. PATIROMER [Concomitant]
     Active Substance: PATIROMER
     Indication: Blood potassium increased
     Dosage: UNK (16.8 G/DL)
  14. ROSUVASTATIN [Concomitant]
     Active Substance: ROSUVASTATIN
     Indication: Blood cholesterol abnormal
     Dosage: UNK
  15. GABAPENTIN [Concomitant]
     Active Substance: GABAPENTIN
     Indication: Neuralgia
     Dosage: UNK
  16. METFORMIN [Concomitant]
     Active Substance: METFORMIN HYDROCHLORIDE
     Indication: Blood glucose abnormal
     Dosage: UNK
  17. CARVEDILOL [Concomitant]
     Active Substance: CARVEDILOL
     Dosage: UNK
  18. LASIX [Concomitant]
     Active Substance: FUROSEMIDE
     Dosage: UNK
  19. VELTASSA [Concomitant]
     Active Substance: PATIROMER
     Dosage: UNK
  20. BACLOFEN [Concomitant]
     Active Substance: BACLOFEN
     Dosage: UNK
  21. LAMOTRIGINE [Concomitant]
     Active Substance: LAMOTRIGINE
     Dosage: UNK
  22. ISOSORBIDE MONONITRATE [Concomitant]
     Active Substance: ISOSORBIDE MONONITRATE
     Dosage: UNK

REACTIONS (13)
  - Hyperkalaemia [Recovered/Resolved]
  - Hypertension [Recovering/Resolving]
  - Bladder cancer [Unknown]
  - Wrong technique in product usage process [Unknown]
  - Off label use [Unknown]
  - Blood pressure systolic decreased [Recovered/Resolved]
  - Body height decreased [Unknown]
  - Dizziness [Unknown]
  - Feeling abnormal [Unknown]
  - Hypotension [Recovered/Resolved]
  - Illness [Unknown]
  - Orthostatic hypotension [Unknown]
  - Urinary tract infection [Unknown]
